FAERS Safety Report 12663474 (Version 2)
Quarter: 2016Q4

REPORT INFORMATION
  Report Type: Report from Study
  Country: FR (occurrence: FR)
  Receive Date: 20160818
  Receipt Date: 20161216
  Transmission Date: 20170207
  Serious: Yes (Death, Other)
  Sender: FDA-Public Use
  Company Number: FR-CELGENEUS-FRA-2016082110

PATIENT

DRUGS (8)
  1. REVLIMID [Suspect]
     Active Substance: LENALIDOMIDE
     Dosage: 10 MG
     Route: 048
  2. REVLIMID [Suspect]
     Active Substance: LENALIDOMIDE
     Indication: PLASMA CELL MYELOMA
     Dosage: 25 MG
     Route: 048
  3. REVLIMID [Suspect]
     Active Substance: LENALIDOMIDE
     Dosage: 25 MG
     Route: 048
  4. DEXAMETHASONE. [Suspect]
     Active Substance: DEXAMETHASONE
     Indication: PLASMA CELL MYELOMA
     Dosage: 20 MG
     Route: 065
  5. DEXAMETHASONE. [Suspect]
     Active Substance: DEXAMETHASONE
     Dosage: 20 MG
     Route: 065
  6. CARFILZOMIB [Suspect]
     Active Substance: CARFILZOMIB
     Indication: PLASMA CELL MYELOMA
     Dosage: 20/36MG/M2
     Route: 065
  7. CARFILZOMIB [Suspect]
     Active Substance: CARFILZOMIB
     Dosage: 20/36MG/M2
     Route: 065
  8. MELPHALAN [Concomitant]
     Active Substance: MELPHALAN
     Indication: PLASMA CELL MYELOMA
     Dosage: 200 MG/MEXP2
     Route: 065

REACTIONS (38)
  - Septic shock [Fatal]
  - Musculoskeletal pain [Unknown]
  - Bronchitis [Unknown]
  - Influenza [Unknown]
  - Pneumocystis jirovecii pneumonia [Unknown]
  - Organising pneumonia [Unknown]
  - Mucosal inflammation [Unknown]
  - Neutropenia [Unknown]
  - Jugular vein thrombosis [Unknown]
  - Death [Fatal]
  - Intracardiac thrombus [Unknown]
  - Bacteraemia [Unknown]
  - Thrombophlebitis superficial [Unknown]
  - Acute kidney injury [Unknown]
  - Atrial fibrillation [Unknown]
  - Dyspnoea exertional [Unknown]
  - Lymphopenia [Unknown]
  - Pulmonary embolism [Unknown]
  - Pneumonia [Unknown]
  - Poisoning [Unknown]
  - Infection [Unknown]
  - Stomatitis [Unknown]
  - Arrhythmia [Unknown]
  - Tachycardia [Unknown]
  - Cough [Unknown]
  - Dyspnoea [Unknown]
  - Bradycardia [Unknown]
  - Cardiac failure [Unknown]
  - Device related infection [Unknown]
  - Herpes zoster [Unknown]
  - Blood disorder [Unknown]
  - Anaemia [Unknown]
  - Disease progression [Unknown]
  - Gastroenteritis [Unknown]
  - Mental disorder [Unknown]
  - Diarrhoea [Unknown]
  - Discomfort [Unknown]
  - Thrombocytopenia [Unknown]
